FAERS Safety Report 6217394-7 (Version None)
Quarter: 2009Q2

REPORT INFORMATION
  Report Type: 
  Country: None (occurrence: None)
  Receive Date: 20090608
  Receipt Date: 20080909
  Transmission Date: 20091009
  Serious: No
  Sender: FDA-Public Use
  Company Number: A0746774A

PATIENT
  Age: 55 Year
  Sex: Female

DRUGS (10)
  1. WELLBUTRIN XL [Suspect]
     Indication: BIPOLAR II DISORDER
     Dosage: 300MG PER DAY
     Route: 048
     Dates: start: 20080214, end: 20080317
  2. DEPAKOTE [Concomitant]
  3. TRAZODONE HCL [Concomitant]
  4. ALEVE [Concomitant]
  5. MIRAPEX [Concomitant]
  6. NEXIUM [Concomitant]
  7. PROVENTIL-HFA [Concomitant]
  8. NASONEX [Concomitant]
  9. AZMACORT [Concomitant]
  10. ZYRTEC [Concomitant]

REACTIONS (12)
  - ABDOMINAL PAIN UPPER [None]
  - CHEST PAIN [None]
  - CONSTIPATION [None]
  - DIZZINESS [None]
  - DYSKINESIA [None]
  - INSOMNIA [None]
  - IRRITABILITY [None]
  - MUSCLE SPASMS [None]
  - NAUSEA [None]
  - NERVOUSNESS [None]
  - TREMOR [None]
  - WEIGHT INCREASED [None]
